FAERS Safety Report 6978732-0 (Version None)
Quarter: 2010Q3

REPORT INFORMATION
  Report Type: 
  Country: None (occurrence: None)
  Receive Date: 20100913
  Receipt Date: 20100902
  Transmission Date: 20110219
  Serious: Yes (Other)
  Sender: FDA-Public Use
  Company Number: B0674102A

PATIENT
  Sex: Female

DRUGS (1)
  1. CLENIL MODULITE [Suspect]
     Indication: PRODUCT USED FOR UNKNOWN INDICATION
     Route: 055

REACTIONS (4)
  - ASTHMA [None]
  - GLOSSODYNIA [None]
  - HEADACHE [None]
  - OROPHARYNGEAL PAIN [None]
